FAERS Safety Report 4934092-8 (Version None)
Quarter: 2006Q1

REPORT INFORMATION
  Report Type: 
  Country: None (occurrence: None)
  Receive Date: 20060303
  Receipt Date: 20060223
  Transmission Date: 20060701
  Serious: Yes (Hospitalization)
  Sender: FDA-Public Use
  Company Number: HQWYE994524FEB06

PATIENT
  Sex: Female

DRUGS (1)
  1. INDERAL LA [Suspect]
     Dosage: 320 MG 1X PER 1 DAY, UNKNOWN SEVERAL YEARS

REACTIONS (1)
  - BLOOD PRESSURE INCREASED [None]
